FAERS Safety Report 5290185-X (Version None)
Quarter: 2007Q2

REPORT INFORMATION
  Report Type: 
  Country: None (occurrence: None)
  Receive Date: 20070402
  Receipt Date: 20070326
  Transmission Date: 20071010
  Serious: Yes (Death)
  Sender: FDA-Public Use
  Company Number: PRI050412007016

PATIENT
  Age: 71 Year
  Sex: Male
  Weight: 65.318 kg

DRUGS (7)
  1. CETUXIMAB (BMS) [Suspect]
     Indication: COLON CANCER METASTATIC
     Dosage: 470MG IV QW
     Route: 042
     Dates: start: 20061206, end: 20070212
  2. BEACIZUMAB (GENETECH) [Suspect]
     Indication: COLON CANCER METASTATIC
     Dosage: 552MG IV Q2W
     Route: 042
     Dates: start: 20061206, end: 20070212
  3. FLUOROURACIL [Suspect]
     Indication: COLON CANCER METASTATIC
     Dosage: 564MG/3384MG IV Q2W
     Route: 042
     Dates: start: 20061206, end: 20070212
  4. LEUCOVORIN CALCIUM [Suspect]
     Indication: COLON CANCER METASTATIC
     Dosage: 752MG IV
     Route: 042
     Dates: start: 20061206, end: 20070212
  5. BENICAR [Concomitant]
  6. NORVASC [Concomitant]
  7. VICODIN [Concomitant]

REACTIONS (4)
  - ARTERIOSCLEROSIS CORONARY ARTERY [None]
  - GASTROINTESTINAL EROSION [None]
  - INTESTINAL ULCER PERFORATION [None]
  - PERITONITIS [None]
